FAERS Safety Report 16361858 (Version 1)
Quarter: 2019Q3

REPORT INFORMATION
  Report Type: Spontaneous
  Country: US (occurrence: US)
  Receive Date: 20190524
  Receipt Date: 20190524
  Transmission Date: 20191004
  Serious: Yes (Other)
  Sender: FDA-Public Use
  Company Number: None

PATIENT
  Age: 26 Month
  Sex: Female
  Weight: 13.5 kg

DRUGS (3)
  1. MONTELUKAST [Suspect]
     Active Substance: MONTELUKAST SODIUM
     Indication: INFECTION
     Route: 048
     Dates: start: 20180501, end: 20181031
  2. MONTELUKAST [Suspect]
     Active Substance: MONTELUKAST SODIUM
     Indication: EAR INFECTION
     Route: 048
     Dates: start: 20180501, end: 20181031
  3. MONTELUKAST [Suspect]
     Active Substance: MONTELUKAST SODIUM
     Indication: SINUSITIS
     Route: 048
     Dates: start: 20180501, end: 20181031

REACTIONS (11)
  - Adverse drug reaction [None]
  - Anxiety [None]
  - Reaction to food additive [None]
  - Reaction to colouring [None]
  - Behaviour disorder [None]
  - Irritability [None]
  - Restlessness [None]
  - Pain in extremity [None]
  - Crying [None]
  - Hallucination, visual [None]
  - Aggression [None]

NARRATIVE: CASE EVENT DATE: 20181031
